FAERS Safety Report 12149507 (Version 1)
Quarter: 2016Q1

REPORT INFORMATION
  Report Type: Spontaneous
  Country: DE (occurrence: DE)
  Receive Date: 20160304
  Receipt Date: 20160304
  Transmission Date: 20160526
  Serious: Yes (Other)
  Sender: FDA-Public Use
  Company Number: DE-009507513-1603DEU001171

PATIENT
  Sex: Male

DRUGS (1)
  1. BETAMETHASONE. [Suspect]
     Active Substance: BETAMETHASONE
     Indication: ASPIRIN-EXACERBATED RESPIRATORY DISEASE
     Dosage: UNK
     Route: 048

REACTIONS (3)
  - Adverse event [Not Recovered/Not Resolved]
  - Cerebrovascular accident [Unknown]
  - Skin disorder [Not Recovered/Not Resolved]
